FAERS Safety Report 7044868-1 (Version None)
Quarter: 2010Q4

REPORT INFORMATION
  Report Type: 
  Country: None (occurrence: None)
  Receive Date: 20101014
  Receipt Date: 20101006
  Transmission Date: 20110411
  Serious: Yes (Hospitalization)
  Sender: FDA-Public Use
  Company Number: PHHY2010JP67598

PATIENT
  Age: 86 Year
  Sex: Male

DRUGS (1)
  1. COMTAN [Suspect]
     Indication: PARKINSON'S DISEASE
     Dosage: 300 MG, QD
     Route: 048

REACTIONS (2)
  - PNEUMONIA [None]
  - WRONG TECHNIQUE IN DRUG USAGE PROCESS [None]
